FAERS Safety Report 21389183 (Version 2)
Quarter: 2024Q4

REPORT INFORMATION
  Report Type: Spontaneous
  Country: DE (occurrence: DE)
  Receive Date: 20220929
  Receipt Date: 20241017
  Transmission Date: 20250115
  Serious: Yes (Hospitalization, Other)
  Sender: TEVA
  Company Number: DE-ADRED-05426-01

PATIENT
  Age: 60 Year
  Sex: Female
  Weight: 67 kg

DRUGS (10)
  1. LEVETIRACETAM [Suspect]
     Active Substance: LEVETIRACETAM
     Indication: Product used for unknown indication
     Dosage: 750 MG, BID
     Route: 048
  2. DOCETAXEL [Concomitant]
     Active Substance: DOCETAXEL
     Indication: Product used for unknown indication
     Dosage: UNK (NK)
     Route: 042
  3. LOPERAMIDE [Concomitant]
     Active Substance: LOPERAMIDE
     Indication: Product used for unknown indication
     Dosage: TIME INTERVAL: AS NECESSARY
     Route: 048
  4. IRBESARTAN [Concomitant]
     Active Substance: IRBESARTAN
     Indication: Product used for unknown indication
     Dosage: 300 MG QD
     Route: 048
  5. PERTUZUMAB [Suspect]
     Active Substance: PERTUZUMAB
     Indication: Product used for unknown indication
     Dosage: UNK (NK)
     Route: 042
  6. LACOSAMIDE [Concomitant]
     Active Substance: LACOSAMIDE
     Indication: Product used for unknown indication
     Dosage: 150 MG, BID
     Route: 048
  7. TRASTUZUMAB [Suspect]
     Active Substance: TRASTUZUMAB
     Indication: Product used for unknown indication
     Dosage: UNK (NK)
     Route: 042
  8. AMLODIPINE BESYLATE [Concomitant]
     Active Substance: AMLODIPINE BESYLATE
     Indication: Product used for unknown indication
     Dosage: 5 MG (1-0-0.5-0, TABLETS)
     Route: 048
  9. PANTOPRAZOLE SODIUM [Concomitant]
     Active Substance: PANTOPRAZOLE SODIUM
     Indication: Product used for unknown indication
     Dosage: 40 MG (0.5-0-0.5-0, TABLETS)
     Route: 048
  10. BISOPROLOL [Concomitant]
     Active Substance: BISOPROLOL\BISOPROLOL FUMARATE
     Indication: Product used for unknown indication
     Dosage: 5 MG, BID
     Route: 048

REACTIONS (2)
  - Erysipelas [Unknown]
  - Pyrexia [Unknown]
